FAERS Safety Report 12298642 (Version 1)
Quarter: 2016Q2

REPORT INFORMATION
  Report Type: Spontaneous
  Country: US (occurrence: US)
  Receive Date: 20160425
  Receipt Date: 20160425
  Transmission Date: 20160815
  Serious: No
  Sender: FDA-Public Use
  Company Number: US-BIOGEN-2016BI00223436

PATIENT

DRUGS (1)
  1. AVONEX [Suspect]
     Active Substance: INTERFERON BETA-1A
     Indication: MULTIPLE SCLEROSIS

REACTIONS (9)
  - Hypoaesthesia [Unknown]
  - Eye disorder [Unknown]
  - Migraine [Unknown]
  - Dizziness [Unknown]
  - Paraesthesia [Unknown]
  - Adverse drug reaction [Unknown]
  - Head discomfort [Unknown]
  - Tinnitus [Unknown]
  - Eye pain [Unknown]
